FAERS Safety Report 16144026 (Version 5)
Quarter: 2019Q4

REPORT INFORMATION
  Report Type: Report from Study
  Country: US (occurrence: US)
  Receive Date: 20190401
  Receipt Date: 20191017
  Transmission Date: 20200122
  Serious: Yes (Hospitalization, Other)
  Sender: FDA-Public Use
  Company Number: US-ACTELION-A-US2016-132861

PATIENT
  Age: 68 Year
  Sex: Female
  Weight: 61.68 kg

DRUGS (10)
  1. SINEMET [Interacting]
     Active Substance: CARBIDOPA\LEVODOPA
     Indication: TREMOR
     Route: 065
  2. XARELTO [Concomitant]
     Active Substance: RIVAROXABAN
  3. IRON [Interacting]
     Active Substance: IRON
     Indication: HAEMOGLOBIN DECREASED
     Dosage: UNK
     Route: 065
     Dates: start: 201601
  4. FLOLAN [Concomitant]
     Active Substance: EPOPROSTENOL SODIUM
  5. VELETRI [Suspect]
     Active Substance: EPOPROSTENOL
     Dosage: 32.38 NG/KG, PER MIN
     Route: 042
  6. IRON [Interacting]
     Active Substance: IRON
     Dosage: UNK
     Route: 065
     Dates: start: 201604
  7. VELETRI [Suspect]
     Active Substance: EPOPROSTENOL
     Dosage: 32.4 NG/KG, PER MIN
     Route: 042
     Dates: start: 20160516
  8. VELETRI [Suspect]
     Active Substance: EPOPROSTENOL
     Dosage: 32.38 NG/KG, PER MIN
     Route: 042
  9. VELETRI [Suspect]
     Active Substance: EPOPROSTENOL
     Indication: PULMONARY ARTERIAL HYPERTENSION
     Dosage: 32.9 NG/KG, PER MIN
     Route: 042
     Dates: start: 20150302
  10. LETAIRIS [Concomitant]
     Active Substance: AMBRISENTAN

REACTIONS (26)
  - Haemoglobin decreased [Unknown]
  - Palpitations [Unknown]
  - Dyspnoea [Unknown]
  - Device breakage [Unknown]
  - Multiple allergies [Unknown]
  - Fluid overload [Unknown]
  - Dyspnoea exertional [Unknown]
  - Tremor [Unknown]
  - Drug interaction [Unknown]
  - Malaise [Unknown]
  - Unevaluable event [Unknown]
  - Flushing [Unknown]
  - Pain in jaw [Unknown]
  - Dry skin [Unknown]
  - Nasal congestion [Unknown]
  - Eye haemorrhage [Unknown]
  - Cough [Unknown]
  - Condition aggravated [Unknown]
  - Catheter management [Unknown]
  - Dizziness [Unknown]
  - Oxygen saturation decreased [Unknown]
  - Dermatitis allergic [Unknown]
  - Bronchitis [Unknown]
  - Blindness unilateral [Unknown]
  - Osteopenia [Unknown]
  - Fluid retention [Unknown]

NARRATIVE: CASE EVENT DATE: 201601
